FAERS Safety Report 4865769-0 (Version None)
Quarter: 2005Q4

REPORT INFORMATION
  Report Type: 
  Country: None (occurrence: None)
  Receive Date: 20051220
  Receipt Date: 20051213
  Transmission Date: 20060501
  Serious: Yes (Other)
  Sender: FDA-Public Use
  Company Number: 2005168017

PATIENT
  Sex: Male

DRUGS (2)
  1. AMLODIPINE [Suspect]
     Indication: HYPERTENSION
     Dates: end: 20051201
  2. CYCLOSPORINE [Concomitant]

REACTIONS (2)
  - ANGIOPLASTY [None]
  - RENAL FAILURE [None]
